FAERS Safety Report 9451240 (Version 1)
Quarter: 2013Q3

REPORT INFORMATION
  Report Type: Spontaneous
  Country: US (occurrence: US)
  Receive Date: 20130809
  Receipt Date: 20130809
  Transmission Date: 20140515
  Serious: Yes (Other)
  Sender: FDA-Public Use
  Company Number: US-TEVA-424326USA

PATIENT
  Age: 74 Year
  Sex: Female
  Weight: 70.37 kg

DRUGS (6)
  1. QNASL [Suspect]
     Indication: RHINITIS
  2. CARDIZEM [Concomitant]
     Indication: HYPERTENSION
  3. KLONOPIN [Concomitant]
     Indication: ANXIETY
  4. MULTIVITAMIN [Concomitant]
     Indication: MEDICAL DIET
  5. VENTOLIN [Concomitant]
     Indication: ASTHMA
  6. PULMICORT [Concomitant]
     Indication: ASTHMA

REACTIONS (1)
  - Urinary retention [Unknown]
